FAERS Safety Report 22001139 (Version 1)
Quarter: 2023Q1

REPORT INFORMATION
  Report Type: Spontaneous
  Country: US (occurrence: None)
  Receive Date: 20230214
  Receipt Date: 20230214
  Transmission Date: 20230418
  Serious: Yes (Other)
  Sender: FDA-Public Use
  Company Number: None

PATIENT
  Age: 34 Year
  Sex: Female
  Weight: 52.2 kg

DRUGS (3)
  1. LAMOTRIGINE [Suspect]
     Active Substance: LAMOTRIGINE
     Indication: Epilepsy
     Dosage: FREQUENCY : 4 TIMES A DAY;?
     Dates: start: 20200830
  2. LEVETIRACETAM [Suspect]
     Active Substance: LEVETIRACETAM
     Dosage: OTHER FREQUENCY : MORNING;?
     Route: 048
     Dates: start: 20200830
  3. LEVETIRACETAM [Suspect]
     Active Substance: LEVETIRACETAM
     Dosage: OTHER FREQUENCY : EVENING;?
     Route: 048

REACTIONS (1)
  - Seizure [None]

NARRATIVE: CASE EVENT DATE: 20200830
